FAERS Safety Report 7688456-2 (Version None)
Quarter: 2011Q3

REPORT INFORMATION
  Report Type: 
  Country: None (occurrence: None)
  Receive Date: 20110817
  Receipt Date: 20110808
  Transmission Date: 20111222
  Serious: Yes (Hospitalization)
  Sender: FDA-Public Use
  Company Number: GB-B.I. PHARMACEUTICALS,INC./RIDGEFIELD-2011-RD-00143DE

PATIENT
  Sex: Female
  Weight: 66 kg

DRUGS (8)
  1. TRIAL PROCEDURE [Suspect]
     Indication: CYSTIC FIBROSIS
  2. PREDNISOLONE [Concomitant]
     Indication: LUNG DISORDER
     Dates: start: 20110806
  3. TOBRAMYCIN [Concomitant]
     Indication: LUNG DISORDER
     Dates: start: 20110805
  4. ALBUTEROL [Concomitant]
     Indication: LUNG DISORDER
     Dates: start: 20110806, end: 20110808
  5. SODIUM CHLORIDE [Concomitant]
     Indication: LUNG DISORDER
     Dates: start: 20110805
  6. TIOTROPIUM BROMIDE [Suspect]
     Indication: CYSTIC FIBROSIS
     Dosage: 5 MCG
     Route: 055
     Dates: start: 20110601
  7. HEPSAL [Concomitant]
     Indication: ANTICOAGULANT THERAPY
     Dates: start: 20110805
  8. MEROPENAM [Concomitant]
     Indication: LUNG DISORDER
     Dates: start: 20110805

REACTIONS (1)
  - LUNG DISORDER [None]
